FAERS Safety Report 6016467-1 (Version None)
Quarter: 2008Q4

REPORT INFORMATION
  Report Type: 
  Country: None (occurrence: None)
  Receive Date: 20081218
  Receipt Date: 20081205
  Transmission Date: 20090506
  Serious: Yes (Life-Threatening)
  Sender: FDA-Public Use
  Company Number: POMP-1000420

PATIENT
  Age: 35 Year
  Sex: Female
  Weight: 98.3 kg

DRUGS (2)
  1. MYOZYME [Suspect]
     Indication: GLYCOGEN STORAGE DISEASE TYPE II
     Dosage: 1300 MG, INTRAVENOUS 1300 MG, Q2W, INTRAVENOUS
     Route: 042
     Dates: start: 20080717, end: 20080101
  2. MYOZYME [Suspect]
     Indication: GLYCOGEN STORAGE DISEASE TYPE II
     Dosage: 1300 MG, INTRAVENOUS 1300 MG, Q2W, INTRAVENOUS
     Route: 042
     Dates: start: 20080101

REACTIONS (2)
  - DEPRESSION [None]
  - SUICIDAL IDEATION [None]
